FAERS Safety Report 5707033-3 (Version None)
Quarter: 2008Q2

REPORT INFORMATION
  Report Type: 
  Country: None (occurrence: None)
  Receive Date: 20080416
  Receipt Date: 20080411
  Transmission Date: 20081010
  Serious: Yes (Other)
  Sender: FDA-Public Use
  Company Number: B0361663A

PATIENT
  Sex: Female

DRUGS (2)
  1. PAROXETINE HCL [Suspect]
     Indication: ANXIETY
     Dosage: 20MG PER DAY
     Route: 065
     Dates: start: 19960626
  2. FLUANXOL [Concomitant]
     Dates: start: 19970428

REACTIONS (19)
  - ABNORMAL DREAMS [None]
  - AGITATION [None]
  - CONFUSIONAL STATE [None]
  - DEPRESSED MOOD [None]
  - DEPRESSION [None]
  - DEPRESSIVE SYMPTOM [None]
  - DIARRHOEA [None]
  - DIZZINESS [None]
  - DRUG WITHDRAWAL SYNDROME [None]
  - DYSPHASIA [None]
  - HYPOKINESIA [None]
  - INFLUENZA LIKE ILLNESS [None]
  - LETHARGY [None]
  - MENTAL DISORDER [None]
  - NIGHT SWEATS [None]
  - NIGHTMARE [None]
  - PARAESTHESIA [None]
  - SUICIDAL IDEATION [None]
  - VERTIGO [None]
